FAERS Safety Report 11308727 (Version 2)
Quarter: 2016Q1

REPORT INFORMATION
  Report Type: Spontaneous
  Country: CA (occurrence: CA)
  Receive Date: 20150724
  Receipt Date: 20160222
  Transmission Date: 20160525
  Serious: Yes (Life-Threatening, Hospitalization, Disabling, Other)
  Sender: FDA-Public Use
  Company Number: CA-ABBVIE-15P-028-1430922-00

PATIENT
  Age: 40 Year
  Sex: Female
  Weight: 45.4 kg

DRUGS (3)
  1. LUPRON DEPOT [Suspect]
     Active Substance: LEUPROLIDE ACETATE
     Indication: VAGINAL HAEMORRHAGE
     Route: 050
     Dates: start: 20141031, end: 20150131
  2. ESTRACE [Concomitant]
     Active Substance: ESTRADIOL
     Indication: HORMONE REPLACEMENT THERAPY
  3. ESTRACE [Concomitant]
     Active Substance: ESTRADIOL
     Indication: PROPHYLAXIS

REACTIONS (26)
  - Anxiety [Unknown]
  - Hypophagia [Unknown]
  - Dyspepsia [Unknown]
  - Pigmentation disorder [Unknown]
  - Fatigue [Not Recovered/Not Resolved]
  - Suicidal ideation [Unknown]
  - Vomiting [Unknown]
  - Impaired quality of life [Unknown]
  - Hospitalisation [Unknown]
  - Gastric ulcer [Unknown]
  - Depression [Unknown]
  - Nausea [Unknown]
  - Mood altered [Unknown]
  - Chloasma [Unknown]
  - Abdominal pain upper [Unknown]
  - Personality change [Unknown]
  - Impaired quality of life [Unknown]
  - Suicide attempt [Unknown]
  - Anxiety [Unknown]
  - Weight decreased [Unknown]
  - Adverse drug reaction [Unknown]
  - Hypertrichosis [Unknown]
  - Fibroma [Unknown]
  - Insomnia [Unknown]
  - Hypertrichosis [Unknown]
  - Ill-defined disorder [Unknown]

NARRATIVE: CASE EVENT DATE: 201411
